FAERS Safety Report 5600466-5 (Version None)
Quarter: 2008Q1

REPORT INFORMATION
  Report Type: 
  Country: None (occurrence: None)
  Receive Date: 20080123
  Receipt Date: 20071108
  Transmission Date: 20080703
  Serious: Yes (Hospitalization, Other)
  Sender: FDA-Public Use
  Company Number: US-PURDUE-USA_2007_0031197

PATIENT
  Sex: Female
  Weight: 71 kg

DRUGS (5)
  1. OXYCONTIN [Suspect]
     Indication: BACK INJURY
     Dosage: 20 MG, SEE TEXT
     Dates: start: 19980101
  2. ARTHROTEC [Concomitant]
     Dosage: 75 UNK, UNK
  3. ROXICET [Concomitant]
  4. CARISOPRODOL [Concomitant]
     Dosage: 350 UNK, UNK
  5. ALPRAZOLAM [Concomitant]
     Dosage: 2 MG, UNK

REACTIONS (8)
  - BACK INJURY [None]
  - DEPRESSION [None]
  - DRUG DEPENDENCE [None]
  - HEADACHE [None]
  - NECK INJURY [None]
  - SUICIDAL IDEATION [None]
  - SUICIDE ATTEMPT [None]
  - THROMBOSIS [None]
